FAERS Safety Report 12067952 (Version 27)
Quarter: 2019Q1

REPORT INFORMATION
  Report Type: Spontaneous
  Country: CA (occurrence: CA)
  Receive Date: 20160210
  Receipt Date: 20190319
  Transmission Date: 20190417
  Serious: Yes (Hospitalization, Other)
  Sender: FDA-Public Use
  Company Number: CA-ROCHE-1708683

PATIENT
  Age: 68 Year
  Sex: Female

DRUGS (25)
  1. XOLAIR [Suspect]
     Active Substance: OMALIZUMAB
     Indication: ASTHMA
     Route: 058
     Dates: start: 20151109
  2. XOLAIR [Suspect]
     Active Substance: OMALIZUMAB
     Route: 058
     Dates: start: 20160307
  3. XOLAIR [Suspect]
     Active Substance: OMALIZUMAB
     Route: 058
     Dates: start: 20180124
  4. XOLAIR [Suspect]
     Active Substance: OMALIZUMAB
     Route: 058
     Dates: start: 20180731
  5. CEFTAZIDIME. [Suspect]
     Active Substance: CEFTAZIDIME
     Indication: PSEUDOMONAS INFECTION
     Route: 042
     Dates: start: 20180416
  6. XOLAIR [Suspect]
     Active Substance: OMALIZUMAB
     Route: 058
     Dates: start: 20160613
  7. AGRIFLU [Suspect]
     Active Substance: INFLUENZA VIRUS VACCINE
     Indication: IMMUNISATION
     Dosage: 0.5 ML
     Route: 065
     Dates: start: 20161103, end: 20161103
  8. XOLAIR [Suspect]
     Active Substance: OMALIZUMAB
     Route: 058
     Dates: start: 20160502
  9. CEFTAZIDIME. [Suspect]
     Active Substance: CEFTAZIDIME
     Dosage: 2 G, Q8H
     Route: 042
  10. XOLAIR [Suspect]
     Active Substance: OMALIZUMAB
     Route: 058
     Dates: start: 20160711
  11. XOLAIR [Suspect]
     Active Substance: OMALIZUMAB
     Route: 058
     Dates: start: 20180529
  12. XOLAIR [Suspect]
     Active Substance: OMALIZUMAB
     Route: 058
     Dates: start: 20160321
  13. XOLAIR [Suspect]
     Active Substance: OMALIZUMAB
     Route: 058
     Dates: start: 20160404
  14. XOLAIR [Suspect]
     Active Substance: OMALIZUMAB
     Route: 058
     Dates: start: 20171017
  15. XOLAIR [Suspect]
     Active Substance: OMALIZUMAB
     Route: 058
     Dates: start: 20171128
  16. SYMBICORT [Concomitant]
     Active Substance: BUDESONIDE\FORMOTEROL FUMARATE DIHYDRATE
     Indication: PRODUCT USED FOR UNKNOWN INDICATION
     Route: 065
  17. XOLAIR [Suspect]
     Active Substance: OMALIZUMAB
     Route: 058
     Dates: start: 20160725
  18. XOLAIR [Suspect]
     Active Substance: OMALIZUMAB
     Route: 058
     Dates: start: 20161031
  19. XOLAIR [Suspect]
     Active Substance: OMALIZUMAB
     Indication: BRONCHOPULMONARY ASPERGILLOSIS ALLERGIC
     Route: 058
     Dates: start: 20151124
  20. XOLAIR [Suspect]
     Active Substance: OMALIZUMAB
     Route: 058
     Dates: start: 20170919
  21. XOLAIR [Suspect]
     Active Substance: OMALIZUMAB
     Route: 058
     Dates: start: 20180910, end: 20180910
  22. CEFTAZIDIME. [Suspect]
     Active Substance: CEFTAZIDIME
     Indication: SECRETION DISCHARGE
     Dosage: 1 G, UNK
     Route: 042
     Dates: start: 20180417
  23. XOLAIR [Suspect]
     Active Substance: OMALIZUMAB
     Route: 058
     Dates: start: 20160203
  24. XOLAIR [Suspect]
     Active Substance: OMALIZUMAB
     Route: 058
     Dates: start: 20180403
  25. XOLAIR [Suspect]
     Active Substance: OMALIZUMAB
     Route: 058
     Dates: start: 20180710

REACTIONS (28)
  - Bronchitis [Unknown]
  - Cataract [Unknown]
  - Heart rate increased [Unknown]
  - Weight decreased [Unknown]
  - Peripheral swelling [Unknown]
  - Nocardiosis [Recovering/Resolving]
  - Bronchopulmonary aspergillosis [Recovered/Resolved]
  - Lung infection [Recovering/Resolving]
  - Enterobacter pneumonia [Recovering/Resolving]
  - Headache [Recovered/Resolved]
  - Rhinorrhoea [Unknown]
  - Palpitations [Unknown]
  - Dyspnoea exertional [Recovering/Resolving]
  - Pseudomonas infection [Unknown]
  - Herpes zoster [Not Recovered/Not Resolved]
  - Bacterial infection [Unknown]
  - Productive cough [Not Recovered/Not Resolved]
  - Dyspnoea [Unknown]
  - Lung infiltration [Not Recovered/Not Resolved]
  - Vomiting [Recovered/Resolved]
  - Glaucoma [Unknown]
  - Nasopharyngitis [Not Recovered/Not Resolved]
  - Urinary tract infection [Unknown]
  - Oxygen saturation decreased [Unknown]
  - Asthma [Not Recovered/Not Resolved]
  - Dysphonia [Unknown]
  - Secretion discharge [Unknown]
  - Malaise [Not Recovered/Not Resolved]

NARRATIVE: CASE EVENT DATE: 20151109
